FAERS Safety Report 4641220-0 (Version None)
Quarter: 2005Q2

REPORT INFORMATION
  Report Type: 
  Country: None (occurrence: None)
  Receive Date: 20050419
  Receipt Date: 20050408
  Transmission Date: 20051028
  Serious: Yes (Hospitalization)
  Sender: FDA-Public Use
  Company Number: 05P-163-0296844-00

PATIENT
  Age: 69 Year
  Sex: Female
  Weight: 101.4 kg

DRUGS (14)
  1. HUMIRA [Suspect]
     Indication: RHEUMATOID ARTHRITIS
     Dosage: 40 MG, 1 IN 2 WK, SUBCUTANEOUS
     Route: 058
     Dates: start: 20040901
  2. CELECOXIB [Concomitant]
  3. METHOTREXATE [Concomitant]
  4. HYDROXYCHLOROQUINE PHOSPHATE [Concomitant]
  5. SULFASALAZINE [Concomitant]
  6. PREDNISONE [Concomitant]
  7. LEVOTHYROXINE SODIUM [Concomitant]
  8. CLONIDINE [Concomitant]
  9. LOTREL [Concomitant]
  10. HORMONE REPLACEMENT [Concomitant]
  11. PYRIDOXINE HYDROCHLORIDE [Concomitant]
  12. LEXAPRO [Concomitant]
  13. TRAZODONE HCL [Concomitant]
  14. FOLIC ACID [Concomitant]

REACTIONS (7)
  - BACK PAIN [None]
  - BURNING SENSATION [None]
  - CONDITION AGGRAVATED [None]
  - INJECTION SITE ERYTHEMA [None]
  - INJECTION SITE PRURITUS [None]
  - INTERVERTEBRAL DISC DEGENERATION [None]
  - NERVE COMPRESSION [None]
